FAERS Safety Report 18678603 (Version 2)
Quarter: 2021Q1

REPORT INFORMATION
  Report Type: Other
  Country: US (occurrence: US)
  Receive Date: 20201230
  Receipt Date: 20210215
  Transmission Date: 20210419
  Serious: Yes (Death, Other)
  Sender: FDA-Public Use
  Company Number: US-ROCHE-2740992

PATIENT
  Age: 68 Year
  Sex: Male

DRUGS (16)
  1. LIPITOR [Concomitant]
     Active Substance: ATORVASTATIN CALCIUM
     Dosage: TAKE 1 TABLET BY MOUTH ONCE DAILY
     Route: 048
  2. ZOFRAN [Concomitant]
     Active Substance: ONDANSETRON HYDROCHLORIDE
     Indication: VOMITING
  3. MIRALAX [Concomitant]
     Active Substance: POLYETHYLENE GLYCOL 3350
     Dosage: TAKE 1 PACK BY MOUTH ONCE DAILY AS NEEDED
     Route: 048
  4. GLYCOLAX [Concomitant]
     Active Substance: POLYETHYLENE GLYCOL 3350
     Dosage: TAKE 1 PACK BY MOUTH ONCE DAILY AS NEEDED
     Route: 048
  5. ALECENSA [Suspect]
     Active Substance: ALECTINIB HYDROCHLORIDE
     Indication: METASTASES TO CENTRAL NERVOUS SYSTEM
  6. TYLENOL [Concomitant]
     Active Substance: ACETAMINOPHEN
     Dosage: 2 TABLETS BY ORAL/ FEEDING TUBE ROUTE EVERY 6 HOURS AS NEEDED
     Route: 048
  7. ESIDRIX [Concomitant]
     Active Substance: HYDROCHLOROTHIAZIDE
     Dosage: TAKE 1 TABLET BY MOUTH ONCE DAILY
     Route: 048
  8. DECADRON [Concomitant]
     Active Substance: DEXAMETHASONE
     Dosage: 1 PILL IN MORNING 9 AM AND 1 PILL AT 2 PM AND THEN FOLLOW WITH THE ONCOLOGIST
     Route: 048
  9. HEPARIN [Concomitant]
     Active Substance: HEPARIN SODIUM
     Dosage: 5000 UNIT/ML, INJECT 1 ML SUBCUTANEOUSLY EVERY 8 HOURS
     Route: 058
  10. HYDRODIURIL [Concomitant]
     Active Substance: HYDROCHLOROTHIAZIDE
     Dosage: TAKE 1 TABLET BY MOUTH ONCE DAILY
     Route: 048
  11. DESITIN (UNITED STATES) [Concomitant]
     Dosage: APPLY 1 APPLICATION TO AFFECTED AREA TWICE DAILY AS NEEDED
  12. NORVASC [Concomitant]
     Active Substance: AMLODIPINE BESYLATE
     Dosage: TAKE 1 TABLET BY MOUTH ONCE DAILY
     Route: 048
  13. COREG [Concomitant]
     Active Substance: CARVEDILOL
     Dosage: 2 TABLETS BY MOUTH TWICE DAILY WITH MEALS
     Route: 048
  14. PROTONIX [Concomitant]
     Active Substance: PANTOPRAZOLE SODIUM
     Dosage: TAKE 1 TABLET DAILY (6 AM) OR HALF HOUR BEFORE MEAL OF THE MORNING
     Route: 048
  15. ZOFRAN [Concomitant]
     Active Substance: ONDANSETRON HYDROCHLORIDE
     Indication: NAUSEA
     Dosage: TAKE 1 TABLET BY MOUTH EVERY 8 HRS AS NEEDED FOR NAUSEA/ VOMITING
     Route: 048
  16. ALECENSA [Suspect]
     Active Substance: ALECTINIB HYDROCHLORIDE
     Indication: LUNG NEOPLASM MALIGNANT
     Dosage: TAKE 4 CAPSULE(S) BY MOUTH TWICE A DAY. TAKE WITH FOOD. SWALLOW CAPSULE WHOLE. DO NOT OPEN OR DISSOL
     Route: 048

REACTIONS (4)
  - Pneumonia [Unknown]
  - Death [Fatal]
  - Vomiting [Unknown]
  - Blood pressure decreased [Unknown]

NARRATIVE: CASE EVENT DATE: 20201225
